FAERS Safety Report 18869499 (Version 2)
Quarter: 2021Q1

REPORT INFORMATION
  Report Type: Spontaneous
  Country: JP (occurrence: JP)
  Receive Date: 20210209
  Receipt Date: 20210309
  Transmission Date: 20210420
  Serious: Yes (Other)
  Sender: FDA-Public Use
  Company Number: JP-MYLANLABS-2021M1007382

PATIENT
  Age: 40 Year
  Sex: Female

DRUGS (2)
  1. NOLVADEX                           /00388701/ [Suspect]
     Active Substance: TAMOXIFEN CITRATE
     Indication: BREAST CANCER
     Route: 048
  2. NOLVADEX                           /00388701/ [Suspect]
     Active Substance: TAMOXIFEN CITRATE
     Indication: CANCER SURGERY

REACTIONS (2)
  - Ovarian cyst [Recovered/Resolved]
  - Ovarian hyperstimulation syndrome [Recovered/Resolved]
